FAERS Safety Report 14481965 (Version 1)
Quarter: 2018Q1

REPORT INFORMATION
  Report Type: Spontaneous
  Country: GB (occurrence: GB)
  Receive Date: 20180202
  Receipt Date: 20180202
  Transmission Date: 20180509
  Serious: Yes (Life-Threatening, Hospitalization)
  Sender: FDA-Public Use
  Company Number: GB-TEVA-2018-GB-852944

PATIENT
  Age: 66 Year
  Sex: Male
  Weight: 77.4 kg

DRUGS (4)
  1. COMPARATOR CISPLATIN [Suspect]
     Active Substance: CISPLATIN
     Indication: SQUAMOUS CELL CARCINOMA
     Dosage: 100 MG/M2, UNK
     Dates: start: 20040311
  2. TYKERB [Suspect]
     Active Substance: LAPATINIB DITOSYLATE
     Indication: SQUAMOUS CELL CARCINOMA
     Dosage: 500 MG, UNK
     Route: 048
     Dates: start: 20040304, end: 20040313
  3. DICLOFENAC [Suspect]
     Active Substance: DICLOFENAC
     Indication: PAIN
     Dosage: 50 MG, TID
     Route: 048
  4. DEXAMETHASONE. [Suspect]
     Active Substance: DEXAMETHASONE
     Indication: NAUSEA
     Dosage: 6 MILLIGRAM DAILY;
     Route: 048
     Dates: start: 20040311, end: 20040314

REACTIONS (1)
  - Duodenal ulcer perforation [Recovered/Resolved]

NARRATIVE: CASE EVENT DATE: 20040314
